FAERS Safety Report 5743980-4 (Version None)
Quarter: 2008Q2

REPORT INFORMATION
  Report Type: 
  Country: None (occurrence: None)
  Receive Date: 20080516
  Receipt Date: 20080509
  Transmission Date: 20081010
  Serious: Yes (Life-Threatening)
  Sender: FDA-Public Use
  Company Number: 2008JP002185

PATIENT
  Age: 45 Year
  Sex: Male
  Weight: 60 kg

DRUGS (5)
  1. TACROLIMUS [Suspect]
     Indication: LIVER TRANSPLANT
     Dates: start: 20080207, end: 20080219
  2. OMEPRAZOLE [Concomitant]
  3. TENOFOVIR DISOPROXIL FUMARATE [Concomitant]
  4. PREDNISONE TAB [Concomitant]
  5. VALGANCICLOVIR HCL [Concomitant]

REACTIONS (1)
  - CENTRAL PONTINE MYELINOLYSIS [None]
